FAERS Safety Report 25779074 (Version 1)
Quarter: 2025Q3

REPORT INFORMATION
  Report Type: Spontaneous
  Country: EU (occurrence: EU)
  Receive Date: 20250909
  Receipt Date: 20250909
  Transmission Date: 20251021
  Serious: Yes (Other)
  Sender: PFIZER
  Company Number: EU-ROCHE-1257534

PATIENT
  Age: 72 Year
  Sex: Female
  Weight: 65 kg

DRUGS (13)
  1. TRASTUZUMAB [Suspect]
     Active Substance: TRASTUZUMAB
     Indication: HER2 positive breast cancer
     Dosage: 8 MG/KG, EVERY 3 WEEKS (LOADING DOSE CYCLE 1, INFUSION)
     Route: 042
  2. TRASTUZUMAB [Suspect]
     Active Substance: TRASTUZUMAB
     Dosage: 6 MG/KG, EVERY 3 WEEKS (MAINTENANCE DOSE, LAST DOSE PRIOR TO SAE ON 17JUL2013)
     Route: 042
     Dates: start: 20130215, end: 20130801
  3. TRASTUZUMAB [Suspect]
     Active Substance: TRASTUZUMAB
     Dosage: 6 MG/KG, EVERY 3 WEEKS (INFUSION)
     Route: 042
     Dates: end: 20130905
  4. EPIRUBICIN HYDROCHLORIDE [Suspect]
     Active Substance: EPIRUBICIN HYDROCHLORIDE
     Indication: Breast cancer metastatic
     Route: 042
     Dates: start: 20121214
  5. EPIRUBICIN HYDROCHLORIDE [Suspect]
     Active Substance: EPIRUBICIN HYDROCHLORIDE
     Route: 042
     Dates: start: 20130104
  6. EPIRUBICIN HYDROCHLORIDE [Suspect]
     Active Substance: EPIRUBICIN HYDROCHLORIDE
     Route: 042
     Dates: start: 20130125
  7. PLACEBO [Suspect]
     Active Substance: PLACEBO
     Indication: HER2 positive breast cancer
     Dosage: UNK, EVERY 3 WEEKS
     Route: 042
     Dates: start: 20130215, end: 20130801
  8. PLACEBO [Suspect]
     Active Substance: PLACEBO
     Dosage: UNK, EVERY 3 WEEKS (DATE OF LAST DOSE PRIOR TO SAE ON 17JUL2013, INFUSION)
     Route: 042
     Dates: end: 20130801
  9. PLACEBO [Suspect]
     Active Substance: PLACEBO
     Dosage: UNK, EVERY 3 WEEKS (INFUSION)
     Route: 042
     Dates: end: 20130905
  10. PLACEBO [Suspect]
     Active Substance: PLACEBO
     Dosage: UNK, EVERY 3 WEEKS (LOADING DOSE, INFUSION)
     Route: 042
  11. BISOPROLOL [Concomitant]
     Active Substance: BISOPROLOL
     Dates: start: 20130527, end: 20130702
  12. BISOPROLOL [Concomitant]
     Active Substance: BISOPROLOL
     Dates: start: 20130702
  13. LORTAN [Concomitant]
     Dates: start: 20130517, end: 20130702

REACTIONS (1)
  - Cardiac failure [Recovered/Resolved]

NARRATIVE: CASE EVENT DATE: 20130801
